FAERS Safety Report 24798485 (Version 1)
Quarter: 2025Q1

REPORT INFORMATION
  Report Type: Spontaneous
  Country: PL (occurrence: PL)
  Receive Date: 20250102
  Receipt Date: 20250102
  Transmission Date: 20250408
  Serious: Yes (Other)
  Sender: STRIDES
  Company Number: PL-STRIDES ARCOLAB LIMITED-2024SP017297

PATIENT
  Age: 6 Decade
  Sex: Male

DRUGS (14)
  1. VALGANCICLOVIR HYDROCHLORIDE [Suspect]
     Active Substance: VALGANCICLOVIR HYDROCHLORIDE
     Indication: Cytomegalovirus infection
     Route: 065
  2. VALGANCICLOVIR HYDROCHLORIDE [Suspect]
     Active Substance: VALGANCICLOVIR HYDROCHLORIDE
     Route: 065
  3. VANCOMYCIN [Suspect]
     Active Substance: VANCOMYCIN
     Indication: Diarrhoea
     Route: 048
  4. Immunoglobulin [Concomitant]
     Indication: Immunodeficiency common variable
     Route: 058
  5. CARVEDILOL [Concomitant]
     Active Substance: CARVEDILOL
     Indication: Product used for unknown indication
     Route: 065
  6. URSODIOL [Concomitant]
     Active Substance: URSODIOL
     Indication: Product used for unknown indication
     Route: 065
  7. URSODIOL [Concomitant]
     Active Substance: URSODIOL
     Route: 065
  8. MESALAMINE [Concomitant]
     Active Substance: MESALAMINE
     Indication: Product used for unknown indication
     Route: 065
  9. METHYLPREDNISOLONE [Concomitant]
     Active Substance: METHYLPREDNISOLONE
     Indication: Product used for unknown indication
     Route: 065
  10. TAMSULOSIN HYDROCHLORIDE [Concomitant]
     Active Substance: TAMSULOSIN HYDROCHLORIDE
     Indication: Product used for unknown indication
     Route: 065
  11. VITAMIN B12 [Concomitant]
     Active Substance: CYANOCOBALAMIN
     Indication: Product used for unknown indication
     Route: 030
  12. TORSEMIDE [Concomitant]
     Active Substance: TORSEMIDE
     Indication: Product used for unknown indication
     Route: 065
  13. GENTAMICIN [Concomitant]
     Active Substance: GENTAMICIN
     Indication: Diarrhoea
     Route: 048
  14. COLISTIN [Concomitant]
     Active Substance: COLISTIN
     Indication: Diarrhoea
     Route: 048

REACTIONS (2)
  - Rebound effect [Unknown]
  - Off label use [Unknown]
